FAERS Safety Report 23248548 (Version 1)
Quarter: 2023Q4

REPORT INFORMATION
  Report Type: Spontaneous
  Country: CN (occurrence: CN)
  Receive Date: 20231201
  Receipt Date: 20231201
  Transmission Date: 20240109
  Serious: Yes (Hospitalization)
  Sender: FDA-Public Use
  Company Number: CN-SHANGHAI JUNSHI BIOSCIENCES CO., LTD.-CN2023008717

PATIENT

DRUGS (3)
  1. TORIPALIMAB [Suspect]
     Active Substance: TORIPALIMAB
     Indication: Malignant melanoma
     Dosage: 240 MG, EVERY 21 DAYS
     Route: 041
     Dates: start: 20231010, end: 20231010
  2. PACLITAXEL [Concomitant]
     Active Substance: PACLITAXEL
     Indication: Malignant melanoma
     Dosage: 300 MG, EVERY 21 DAYS
     Route: 041
     Dates: start: 20231010, end: 20231010
  3. CARBOPLATIN [Concomitant]
     Active Substance: CARBOPLATIN
     Indication: Malignant melanoma
     Dosage: 400 MG (D1), EVERY 21 DAYS
     Route: 041
     Dates: start: 20231010, end: 20231010

REACTIONS (2)
  - Liver injury [Recovering/Resolving]
  - Off label use [Unknown]

NARRATIVE: CASE EVENT DATE: 20231031
